FAERS Safety Report 22044321 (Version 1)
Quarter: 2023Q1

REPORT INFORMATION
  Report Type: Spontaneous
  Country: JP (occurrence: JP)
  Receive Date: 20230228
  Receipt Date: 20230228
  Transmission Date: 20230417
  Serious: Yes (Other)
  Sender: FDA-Public Use
  Company Number: JP-GLAXOSMITHKLINE-JP2022JPN090611

PATIENT

DRUGS (19)
  1. DAPRODUSTAT [Suspect]
     Active Substance: DAPRODUSTAT
     Indication: Nephrogenic anaemia
     Dosage: 4 MG, QD
     Route: 048
     Dates: start: 20211206, end: 20220410
  2. DAPRODUSTAT [Suspect]
     Active Substance: DAPRODUSTAT
     Dosage: 6 MG, QD
     Route: 048
     Dates: start: 20220411, end: 20220529
  3. DAPRODUSTAT [Suspect]
     Active Substance: DAPRODUSTAT
     Dosage: 8 MG, QD
     Route: 048
     Dates: start: 20220530, end: 20220602
  4. DARBEPOETIN ALFA [Concomitant]
     Active Substance: DARBEPOETIN ALFA
     Indication: Nephrogenic anaemia
  5. MIRCERA INJECTION [Concomitant]
     Indication: Nephrogenic anaemia
     Dosage: 25 ?G, ONCE A MONTH
     Route: 058
     Dates: start: 20210614, end: 20210816
  6. MIRCERA INJECTION [Concomitant]
     Dosage: 50 ?G, ONCE A MONTH
     Route: 058
     Dates: start: 20210913, end: 20211011
  7. MIRCERA INJECTION [Concomitant]
     Dosage: 100 ?G, ONCE A MONTH
     Route: 058
     Dates: start: 20211108, end: 20211108
  8. AVAPRO [Concomitant]
     Active Substance: IRBESARTAN
     Dosage: 100 MG, QD, AFTER BREAKFAST
     Route: 048
  9. ADALAT-CR TABLET [Concomitant]
     Dosage: 40 MG, BID, AFTER BREAKFAST AND DINNER
     Route: 048
  10. LASIX [Concomitant]
     Active Substance: FUROSEMIDE
     Dosage: 20 MG, QD, AFTER BREAKFAST
     Route: 048
  11. LOKELMA [Concomitant]
     Active Substance: SODIUM ZIRCONIUM CYCLOSILICATE
     Dosage: 5 G, QOD, AFTER DINNER
     Route: 048
  12. FEBUXOSTAT [Concomitant]
     Active Substance: FEBUXOSTAT
     Dosage: 10 MG, QD, AFTER BREAKFAST
     Route: 048
  13. CARDENALIN TABLET [Concomitant]
     Dosage: 1 MG, QD, AFTER DINNER
     Route: 048
  14. VONOPRAZAN FUMARATE [Concomitant]
     Active Substance: VONOPRAZAN FUMARATE
     Dosage: 20 MG, QD, AFTER DINNER
     Route: 048
  15. GLUFAST OD TABLET [Concomitant]
     Dosage: 5 MG, TID, AFTER EVERY MEAL
     Route: 048
  16. CRESTOR OD TABLETS [Concomitant]
     Dosage: 2.5 MG, QD, AFTER BREAKFAST
     Route: 048
  17. GLACTIV TABLET [Concomitant]
     Dosage: 12.5 MG, QD, AFTER BREAKFAST
     Route: 048
  18. ASPIRIN ENTERIC-COATED TABLET [Concomitant]
     Dosage: 100 MG, QD, AFTER BREAKFAST
     Route: 048
  19. DARBEPOETIN ALFA [Concomitant]
     Active Substance: DARBEPOETIN ALFA
     Indication: Nephrogenic anaemia
     Dosage: 240 ?G /WEEK
     Dates: start: 20220602

REACTIONS (2)
  - Myelodysplastic syndrome [Not Recovered/Not Resolved]
  - Haemoglobin decreased [Unknown]

NARRATIVE: CASE EVENT DATE: 20220401
